FAERS Safety Report 8094553-2 (Version None)
Quarter: 2012Q1

REPORT INFORMATION
  Report Type: 
  Country: None (occurrence: None)
  Receive Date: 20120131
  Receipt Date: 20120124
  Transmission Date: 20120608
  Serious: Yes (Hospitalization, Disabling)
  Sender: FDA-Public Use
  Company Number: US-SANOFI-AVENTIS-2011SA080603

PATIENT
  Age: 64 Year
  Sex: Male
  Weight: 82 kg

DRUGS (4)
  1. CHLORPROMAZINE HCL [Concomitant]
  2. PHISOHEX [Suspect]
     Route: 065
     Dates: start: 19700101, end: 19710101
  3. NITROUS OXIDE [Suspect]
     Route: 065
  4. ALL OTHER THERAPEUTIC PRODUCTS [Suspect]
     Route: 065

REACTIONS (2)
  - NERVOUS SYSTEM DISORDER [None]
  - DEPRESSION [None]
